FAERS Safety Report 14202076 (Version 3)
Quarter: 2018Q1

REPORT INFORMATION
  Report Type: Spontaneous
  Country: DE (occurrence: DE)
  Receive Date: 20171117
  Receipt Date: 20180309
  Transmission Date: 20180508
  Serious: Yes (Hospitalization)
  Sender: FDA-Public Use
  Company Number: DE-009507513-1711DEU006204

PATIENT
  Age: 72 Year
  Sex: Female

DRUGS (8)
  1. TRAZODONE HYDROCHLORIDE. [Concomitant]
     Active Substance: TRAZODONE HYDROCHLORIDE
     Dosage: DAILY DOSE: 50 MG MILLIGRAM(S) EVERY DAY
     Dates: start: 20150608, end: 20150614
  2. REMERGIL [Suspect]
     Active Substance: MIRTAZAPINE
     Dosage: DAILY DOSE: 15 MG MILLIGRAM(S) EVERY DAY
     Route: 048
     Dates: start: 20150603, end: 20150607
  3. TRAZODONE HYDROCHLORIDE. [Concomitant]
     Active Substance: TRAZODONE HYDROCHLORIDE
     Dosage: DAILY DOSE: 100 MG MILLIGRAM(S) EVERY DAY
     Dates: start: 20150615
  4. REMERGIL [Suspect]
     Active Substance: MIRTAZAPINE
     Dosage: DAILY DOSE: 15 MG MILLIGRAM(S) EVERY DAY
     Route: 048
     Dates: start: 20150526, end: 20150528
  5. REMERGIL [Suspect]
     Active Substance: MIRTAZAPINE
     Dosage: DAILY DOSE: 30 MG MILLIGRAM(S) EVERY DAY
     Route: 048
     Dates: start: 20150529, end: 20150602
  6. FOLIC ACID. [Concomitant]
     Active Substance: FOLIC ACID
     Dosage: DAILY DOSE: 5 MG MILLIGRAM(S) EVERY DAY
     Dates: start: 20150429
  7. OLANZAPINE. [Suspect]
     Active Substance: OLANZAPINE
     Dosage: DAILY DOSE: 10 MG MILLIGRAM(S) EVERY DAY
     Dates: start: 20150429
  8. DIMETHICONE. [Concomitant]
     Active Substance: DIMETHICONE
     Dosage: DAILY DOSE: 3 DF DOSAGE FORMS EVERY DAY
     Dates: start: 20150605

REACTIONS (2)
  - Alanine aminotransferase increased [Recovered/Resolved]
  - Gamma-glutamyltransferase increased [Recovered/Resolved]

NARRATIVE: CASE EVENT DATE: 20150603
